FAERS Safety Report 17148618 (Version 1)
Quarter: 2019Q4

REPORT INFORMATION
  Report Type: Spontaneous
  Country: GB (occurrence: GB)
  Receive Date: 20191213
  Receipt Date: 20191213
  Transmission Date: 20200122
  Serious: Yes (Life-Threatening, Disabling)
  Sender: FDA-Public Use
  Company Number: GB-SUN PHARMACEUTICAL INDUSTRIES LTD-2019RR-230783

PATIENT
  Age: 45 Year
  Sex: Male

DRUGS (3)
  1. CLARITHROMYCIN. [Concomitant]
     Active Substance: CLARITHROMYCIN
     Indication: COUGH
     Dosage: 500 MILLIGRAM, DAILY
     Route: 048
     Dates: start: 20060525, end: 20060531
  2. BRUFEN [Suspect]
     Active Substance: IBUPROFEN
     Indication: PRODUCT USED FOR UNKNOWN INDICATION
     Dosage: UNK
     Route: 048
     Dates: end: 20060613
  3. CITALOPRAM [Suspect]
     Active Substance: CITALOPRAM HYDROBROMIDE
     Indication: ANXIETY
     Dosage: WILL BE STOPPED SOON.
     Route: 048
     Dates: start: 20051118

REACTIONS (3)
  - Circulatory collapse [Unknown]
  - Drug interaction [Unknown]
  - Gastrointestinal haemorrhage [Recovering/Resolving]
